FAERS Safety Report 10073888 (Version 1)
Quarter: 2014Q2

REPORT INFORMATION
  Report Type: Report from Study
  Country: BR (occurrence: BR)
  Receive Date: 20140411
  Receipt Date: 20140411
  Transmission Date: 20141212
  Serious: Yes (Death, Other)
  Sender: FDA-Public Use
  Company Number: PHHY2014BR043964

PATIENT
  Sex: Female
  Weight: 80 kg

DRUGS (1)
  1. DIOVAN [Suspect]
     Indication: HYPERTENSION
     Dosage: 3 DF (80 MG), DAILY
     Route: 048

REACTIONS (9)
  - Diabetes mellitus [Fatal]
  - Nosocomial infection [Fatal]
  - Renal failure [Fatal]
  - Organ failure [Fatal]
  - Coma [Fatal]
  - Fall [Unknown]
  - Femur fracture [Unknown]
  - Hip fracture [Unknown]
  - Pain [Unknown]
